FAERS Safety Report 8096423-2 (Version None)
Quarter: 2012Q1

REPORT INFORMATION
  Report Type: 
  Country: None (occurrence: None)
  Receive Date: 20120129
  Receipt Date: 20111116
  Transmission Date: 20120608
  Serious: No
  Sender: FDA-Public Use
  Company Number: US-ABBOTT-11P-163-0874850-00

PATIENT
  Age: 50 Year
  Sex: Female

DRUGS (7)
  1. HUMIRA [Suspect]
     Indication: RHEUMATOID ARTHRITIS
     Dosage: INTERRUPTED D/T AE
     Dates: start: 20111102, end: 20111102
  2. WELLBUTRIN [Concomitant]
     Indication: INAPPROPRIATE AFFECT
  3. PRILOSEC [Concomitant]
     Indication: GASTROOESOPHAGEAL REFLUX DISEASE
     Dosage: OTC
     Route: 048
     Dates: start: 20110501
  4. WELLBUTRIN [Concomitant]
     Indication: DEPRESSION
     Dosage: 150 MG DAILY
     Route: 048
     Dates: start: 20090101
  5. METHOTREXATE [Concomitant]
     Indication: ARTHRITIS
     Dosage: 10 MG ONCE A WEEK
     Route: 048
     Dates: start: 20110501
  6. FOLIC ACID [Concomitant]
     Indication: VITAMIN SUPPLEMENTATION
     Dosage: 2 TABLETS DAILY
     Route: 048
     Dates: start: 20110501
  7. DIFLUNISAL [Concomitant]
     Indication: ARTHRITIS
     Dosage: 500 MG DAILY
     Dates: start: 20110501

REACTIONS (1)
  - SINUSITIS [None]
